FAERS Safety Report 13430416 (Version 1)
Quarter: 2017Q2

REPORT INFORMATION
  Report Type: Spontaneous
  Country: US (occurrence: US)
  Receive Date: 20170412
  Receipt Date: 20170412
  Transmission Date: 20170830
  Serious: No
  Sender: FDA-Public Use
  Company Number: US-PFIZER INC-2017153586

PATIENT
  Age: 38 Year
  Sex: Male
  Weight: 104 kg

DRUGS (1)
  1. KERYDIN [Suspect]
     Active Substance: TAVABOROLE
     Indication: NAIL INFECTION
     Dosage: 1X/DAY
     Dates: start: 201604

REACTIONS (3)
  - Paraesthesia [Unknown]
  - Drug ineffective [Unknown]
  - Erythema [Unknown]
